APPROVED DRUG PRODUCT: TRAMADOL HYDROCHLORIDE
Active Ingredient: TRAMADOL HYDROCHLORIDE
Strength: 50MG
Dosage Form/Route: TABLET;ORAL
Application: A075980 | Product #001
Applicant: MYLAN PHARMACEUTICALS INC
Approved: Nov 21, 2002 | RLD: No | RS: No | Type: DISCN